FAERS Safety Report 5745747-X (Version None)
Quarter: 2008Q2

REPORT INFORMATION
  Report Type: 
  Country: None (occurrence: None)
  Receive Date: 20080519
  Receipt Date: 20080319
  Transmission Date: 20081010
  Serious: No
  Sender: FDA-Public Use
  Company Number: TPA2008A00358

PATIENT

DRUGS (1)
  1. ROZEREM [Suspect]

REACTIONS (1)
  - DRUG INEFFECTIVE [None]
